FAERS Safety Report 4584380-2 (Version None)
Quarter: 2005Q1

REPORT INFORMATION
  Report Type: 
  Country: None (occurrence: None)
  Receive Date: 20050125
  Receipt Date: 20041116
  Transmission Date: 20050727
  Serious: Yes (Hospitalization, Other)
  Sender: FDA-Public Use
  Company Number: USA040874428

PATIENT
  Age: 60 Year
  Sex: Female
  Weight: 54 kg

DRUGS (13)
  1. EVISTA [Suspect]
     Indication: OSTEOPENIA
     Dates: start: 20030101
  2. FORTEO [Suspect]
     Indication: OSTEOPOROSIS
     Dosage: 20 UG DAY
     Dates: start: 20040801
  3. CALCIUM GLUCONATE [Concomitant]
  4. ACIPHEX [Concomitant]
  5. MORPHINE [Concomitant]
  6. XANAX (ALOPRAZOLAM DUM) [Concomitant]
  7. MIACALCIN [Concomitant]
  8. VALIUM [Concomitant]
  9. BACLOFEN [Concomitant]
  10. ZOFRAN [Concomitant]
  11. VITAMIN B COMPLEX CAP [Concomitant]
  12. LEVBID (HYOSCYAMINE SULFATE) [Concomitant]
  13. VITAMIN C [Concomitant]

REACTIONS (9)
  - BLOOD GLUCOSE INCREASED [None]
  - BONE DENSITY DECREASED [None]
  - FALL [None]
  - FEELING ABNORMAL [None]
  - INTERVERTEBRAL DISC OPERATION [None]
  - NONSPECIFIC REACTION [None]
  - OSTEOPOROSIS [None]
  - SPINAL FUSION ACQUIRED [None]
  - URINE CALCIUM INCREASED [None]
